FAERS Safety Report 8248996-4 (Version None)
Quarter: 2012Q2

REPORT INFORMATION
  Report Type: 
  Country: None (occurrence: None)
  Receive Date: 20120402
  Receipt Date: 20120321
  Transmission Date: 20120825
  Serious: Yes (Hospitalization)
  Sender: FDA-Public Use
  Company Number: US-BIOGENIDEC-2011BI044019

PATIENT
  Sex: Male

DRUGS (3)
  1. AVONEX [Suspect]
     Indication: MULTIPLE SCLEROSIS
     Route: 030
  2. AMPYRA [Concomitant]
  3. AVONEX [Suspect]
     Route: 030
     Dates: start: 20030913, end: 20110901

REACTIONS (6)
  - AMNESIA [None]
  - ARTHROPATHY [None]
  - INFLUENZA LIKE ILLNESS [None]
  - GAIT DISTURBANCE [None]
  - JOINT INJURY [None]
  - CORONARY ARTERY DISEASE [None]
